FAERS Safety Report 7711376-1 (Version None)
Quarter: 2011Q3

REPORT INFORMATION
  Report Type: 
  Country: None (occurrence: None)
  Receive Date: 20110810
  Receipt Date: 20110804
  Transmission Date: 20111222
  Serious: Yes (Other)
  Sender: FDA-Public Use
  Company Number: 2011029340

PATIENT
  Age: 43 Year
  Sex: Female

DRUGS (1)
  1. BERINERT [Suspect]
     Indication: HEREDITARY ANGIOEDEMA

REACTIONS (3)
  - C-REACTIVE PROTEIN INCREASED [None]
  - DRUG SPECIFIC ANTIBODY PRESENT [None]
  - ANGIOEDEMA [None]
